FAERS Safety Report 23882486 (Version 1)
Quarter: 2024Q2

REPORT INFORMATION
  Report Type: Spontaneous
  Country: HR (occurrence: HR)
  Receive Date: 20240522
  Receipt Date: 20240522
  Transmission Date: 20240716
  Serious: Yes (Other)
  Sender: FDA-Public Use
  Company Number: HR-ABBVIE-5769019

PATIENT
  Age: 32 Year
  Sex: Female

DRUGS (4)
  1. RINVOQ [Suspect]
     Active Substance: UPADACITINIB
     Indication: Dermatitis atopic
     Dosage: 30MG / BREAKING TABLETS IN HALF
     Route: 048
     Dates: start: 202402, end: 20240317
  2. RINVOQ [Suspect]
     Active Substance: UPADACITINIB
     Indication: Dermatitis atopic
     Route: 048
     Dates: start: 202303, end: 202401
  3. RINVOQ [Suspect]
     Active Substance: UPADACITINIB
     Indication: Dermatitis atopic
     Dosage: 30MG / BREAKING TABLETS IN MORE THAN HALF
     Route: 048
     Dates: start: 202401, end: 202402
  4. MEDROL [Concomitant]
     Active Substance: METHYLPREDNISOLONE
     Indication: Product used for unknown indication
     Route: 065
     Dates: start: 202402

REACTIONS (4)
  - Multiple sclerosis [Unknown]
  - Drug ineffective [Unknown]
  - Dermatitis atopic [Unknown]
  - Off label use [Recovered/Resolved]

NARRATIVE: CASE EVENT DATE: 20231201
